FAERS Safety Report 8847684 (Version 1)
Quarter: 2012Q4

REPORT INFORMATION
  Report Type: 
  Country: DE (occurrence: DE)
  Receive Date: 20121018
  Receipt Date: 20121018
  Transmission Date: 20130627
  Serious: Yes (Other)
  Sender: FDA-Public Use
  Company Number: DE-BAXTER-2012BAX019544

PATIENT
  Age: 83 Year
  Sex: Male
  Weight: 85 kg

DRUGS (3)
  1. KIOVIG [Suspect]
     Indication: GUILLAIN BARRE SYNDROME
     Route: 042
     Dates: start: 20120907
  2. KIOVIG [Suspect]
     Route: 042
     Dates: start: 20120907
  3. KIOVIG [Suspect]
     Route: 042
     Dates: start: 20120907

REACTIONS (1)
  - Polyarthritis [Not Recovered/Not Resolved]
